FAERS Safety Report 21160334 (Version 5)
Quarter: 2023Q1

REPORT INFORMATION
  Report Type: Spontaneous
  Country: CA (occurrence: CA)
  Receive Date: 20220802
  Receipt Date: 20230228
  Transmission Date: 20230418
  Serious: Yes (Other)
  Sender: FDA-Public Use
  Company Number: CA-PFIZER INC-202200642934

PATIENT
  Age: 53 Year
  Sex: Female

DRUGS (6)
  1. ABRILADA [Suspect]
     Active Substance: ADALIMUMAB-AFZB
     Indication: Psoriatic arthropathy
     Dosage: 40 MG, EVERY 2 WEEKS
     Route: 058
     Dates: start: 20220426
  2. LEFLUNOMIDE [Concomitant]
     Active Substance: LEFLUNOMIDE
     Dosage: UNK
  3. METHOTREXATE [Concomitant]
     Active Substance: METHOTREXATE
     Dosage: 1 DF, DISCONTINUED
  4. PLAQUENIL [Concomitant]
     Active Substance: HYDROXYCHLOROQUINE SULFATE
     Dosage: UNK
  5. PREDNISONE [Concomitant]
     Active Substance: PREDNISONE
     Dosage: UNK
  6. TOFACITINIB [Concomitant]
     Active Substance: TOFACITINIB
     Dosage: UNK

REACTIONS (3)
  - Insomnia [Not Recovered/Not Resolved]
  - Drug ineffective [Unknown]
  - Condition aggravated [Not Recovered/Not Resolved]

NARRATIVE: CASE EVENT DATE: 20220101
